FAERS Safety Report 10400591 (Version 1)
Quarter: 2014Q3

REPORT INFORMATION
  Report Type: Spontaneous
  Country: US (occurrence: US)
  Receive Date: 20140821
  Receipt Date: 20140821
  Transmission Date: 20150326
  Serious: No
  Sender: FDA-Public Use
  Company Number: US-ASTRAZENECA-2014SE14428

PATIENT
  Sex: Female

DRUGS (5)
  1. SYMBICORT [Suspect]
     Active Substance: BUDESONIDE\FORMOTEROL FUMARATE DIHYDRATE
     Dosage: 80/4.5, UNKNOWN
     Route: 055
  2. SPIRIVA [Concomitant]
     Active Substance: TIOTROPIUM BROMIDE MONOHYDRATE
  3. COMBIVENT [Concomitant]
     Active Substance: ALBUTEROL SULFATE\IPRATROPIUM BROMIDE
  4. BLOOD PRESSURE MEDICATION [Concomitant]
     Active Substance: UNSPECIFIED INGREDIENT
  5. SYMBICORT [Suspect]
     Active Substance: BUDESONIDE\FORMOTEROL FUMARATE DIHYDRATE
     Dosage: 160/4.5, 2 PUFFS BID
     Route: 055

REACTIONS (8)
  - Feeling abnormal [Unknown]
  - Nervous system disorder [Unknown]
  - Adverse event [Unknown]
  - Fatigue [Unknown]
  - Dyspnoea [Unknown]
  - Device misuse [Unknown]
  - Diabetes mellitus [Not Recovered/Not Resolved]
  - Intentional product misuse [Unknown]
